FAERS Safety Report 4749134-2 (Version None)
Quarter: 2005Q3

REPORT INFORMATION
  Report Type: 
  Country: None (occurrence: None)
  Receive Date: 20050817
  Receipt Date: 20050804
  Transmission Date: 20060218
  Serious: Yes (Hospitalization)
  Sender: FDA-Public Use
  Company Number: 216766

PATIENT
  Age: 21 Year
  Sex: Female

DRUGS (4)
  1. RAPTIVA [Suspect]
     Indication: PSORIASIS
     Dosage: 0.6 ML, 1/WEEK, SUBCUTANEOUS ; 0.9 ML, 1/WEEK, SUBCUTANEOUS
     Route: 058
     Dates: start: 20050407, end: 20050407
  2. RAPTIVA [Suspect]
     Indication: PSORIASIS
     Dosage: 0.6 ML, 1/WEEK, SUBCUTANEOUS ; 0.9 ML, 1/WEEK, SUBCUTANEOUS
     Route: 058
     Dates: start: 20050414, end: 20050427
  3. DICLOFENAC SODIUM [Concomitant]
  4. CORTISONE (CORTISONE ACETATE) [Concomitant]

REACTIONS (7)
  - ARTHROPATHY [None]
  - BACK PAIN [None]
  - C-REACTIVE PROTEIN INCREASED [None]
  - IMPAIRED WORK ABILITY [None]
  - OEDEMA PERIPHERAL [None]
  - PSORIASIS [None]
  - SWELLING FACE [None]
